FAERS Safety Report 11512266 (Version 1)
Quarter: 2015Q3

REPORT INFORMATION
  Report Type: Spontaneous
  Country: FR (occurrence: FR)
  Receive Date: 20150916
  Receipt Date: 20150916
  Transmission Date: 20151125
  Serious: Yes (Life-Threatening, Hospitalization, Disabling)
  Sender: FDA-Public Use
  Company Number: FR-ACCORD-033679

PATIENT
  Age: 36 Year
  Sex: Female

DRUGS (2)
  1. DOCETAXEL ACCORD [Suspect]
     Active Substance: DOCETAXEL
     Indication: BREAST CANCER
     Dosage: IN A SINGLE INTAKE
     Route: 042
     Dates: start: 20150828, end: 20150828
  2. HERCEPTIN [Suspect]
     Active Substance: TRASTUZUMAB
     Indication: BREAST CANCER
     Route: 042
     Dates: start: 20150428, end: 20150428

REACTIONS (5)
  - Agranulocytosis [Recovered/Resolved]
  - Lung disorder [Recovered/Resolved]
  - Febrile neutropenia [Unknown]
  - Rash [Recovered/Resolved]
  - Generalised oedema [Unknown]

NARRATIVE: CASE EVENT DATE: 20150503
